FAERS Safety Report 6666488-0 (Version None)
Quarter: 2010Q2

REPORT INFORMATION
  Report Type: 
  Country: None (occurrence: None)
  Receive Date: 20100402
  Receipt Date: 20100326
  Transmission Date: 20101027
  Serious: Yes (Other)
  Sender: FDA-Public Use
  Company Number: US-AMGEN-QUU402250

PATIENT
  Sex: Female

DRUGS (17)
  1. EPOGEN [Suspect]
     Indication: RENAL FAILURE CHRONIC
     Dates: start: 20030121, end: 20100326
  2. ZEMPLAR [Concomitant]
  3. TYLENOL W/ CODEINE NO. 3 [Concomitant]
  4. COZAAR [Concomitant]
  5. ZAROXOLYN [Concomitant]
  6. ERGOCALCIFEROL [Concomitant]
  7. REGLAN [Concomitant]
  8. UNSPECIFIED MEDICATION [Concomitant]
  9. FLEXERIL [Concomitant]
  10. SPIRONOLACTONE [Concomitant]
  11. CLONIDINE [Concomitant]
  12. VITAMIN E [Concomitant]
  13. ZINC [Concomitant]
  14. TOPROL-XL [Concomitant]
  15. MAGNESIUM OXIDE [Concomitant]
  16. THIAMINE [Concomitant]
  17. VITAMIN C [Concomitant]

REACTIONS (2)
  - APLASIA PURE RED CELL [None]
  - THERAPEUTIC RESPONSE DECREASED [None]
